FAERS Safety Report 6073176-0 (Version None)
Quarter: 2009Q1

REPORT INFORMATION
  Report Type: 
  Country: None (occurrence: None)
  Receive Date: 20090211
  Receipt Date: 20090128
  Transmission Date: 20090719
  Serious: Yes (Hospitalization, Other)
  Sender: FDA-Public Use
  Company Number: US-CELGENEUS-056-21880-09010682

PATIENT
  Age: 65 Year
  Sex: Female

DRUGS (14)
  1. REVLIMID [Suspect]
     Indication: MULTIPLE MYELOMA
     Route: 048
     Dates: start: 20081229, end: 20081229
  2. REVLIMID [Suspect]
     Route: 048
     Dates: start: 20090105
  3. VORINOSTAT [Suspect]
     Indication: MULTIPLE MYELOMA
     Route: 048
     Dates: start: 20081229, end: 20090101
  4. VORINOSTAT [Suspect]
     Route: 048
     Dates: start: 20090112
  5. DEXAMETHASONE TAB [Suspect]
     Indication: MULTIPLE MYELOMA
     Route: 048
     Dates: start: 20081229, end: 20090125
  6. DEXAMETHASONE TAB [Suspect]
     Route: 048
     Dates: start: 20090126
  7. ONDANSETRON HYDROCHLORIDE [Concomitant]
     Indication: DRUG USE FOR UNKNOWN INDICATION
     Route: 065
     Dates: start: 20081229
  8. PREGABALIN [Concomitant]
     Indication: DRUG USE FOR UNKNOWN INDICATION
     Route: 065
     Dates: start: 20080107
  9. SULFAMETHOXAZOLE AND TRIMETHOPRIM [Concomitant]
     Indication: DRUG USE FOR UNKNOWN INDICATION
     Route: 065
     Dates: start: 20081229
  10. TRAMADOL HCL [Concomitant]
     Indication: DRUG USE FOR UNKNOWN INDICATION
     Route: 065
     Dates: start: 20081216
  11. CLONAZEPAM [Concomitant]
     Indication: DRUG USE FOR UNKNOWN INDICATION
     Route: 065
     Dates: start: 20081216, end: 20090101
  12. CLONAZEPAM [Concomitant]
     Route: 065
     Dates: start: 20090102, end: 20090103
  13. CLONAZEPAM [Concomitant]
     Route: 065
     Dates: start: 20090104
  14. ASPIRIN LYSINE [Concomitant]
     Indication: DRUG USE FOR UNKNOWN INDICATION
     Route: 065
     Dates: start: 20081229

REACTIONS (2)
  - DIARRHOEA [None]
  - OVERDOSE [None]
